FAERS Safety Report 8367346-6 (Version None)
Quarter: 2012Q2

REPORT INFORMATION
  Report Type: 
  Country: None (occurrence: None)
  Receive Date: 20120517
  Receipt Date: 20120511
  Transmission Date: 20120825
  Serious: Yes (Other)
  Sender: FDA-Public Use
  Company Number: US-BAYER-2012-047318

PATIENT
  Age: 45 Year
  Sex: Female
  Weight: 72.562 kg

DRUGS (4)
  1. MOTRIN [Concomitant]
     Dosage: 800 MG, PRN
  2. TYLENOL W/ CODEINE NO. 3 [Concomitant]
     Indication: PAIN
     Dosage: 1-2/Q (INTERPRETED AS EVERY) 4 HOURS PRN (INTERPRETED AS AS NEEDED)
     Route: 048
     Dates: start: 20110615
  3. DROSPIRENONE AND ETHINYL ESTRADIOL [Suspect]
     Dosage: UNK
     Dates: start: 20080901, end: 20110601
  4. YASMIN [Suspect]
     Dosage: UNK
     Dates: start: 20050601, end: 20080501

REACTIONS (1)
  - DEEP VEIN THROMBOSIS [None]
